FAERS Safety Report 11994912 (Version 1)
Quarter: 2016Q1

REPORT INFORMATION
  Report Type: Spontaneous
  Country: US (occurrence: US)
  Receive Date: 20160107
  Receipt Date: 20160107
  Transmission Date: 20160526
  Serious: Yes (Hospitalization)
  Sender: FDA-Public Use
  Company Number: US-IBIGEN-2015.01587

PATIENT
  Age: 71 Year
  Sex: Female

DRUGS (1)
  1. NAFCILLIN SODIUM. [Suspect]
     Active Substance: NAFCILLIN SODIUM
     Dosage: NAFCILLIN 2G EVERY 4 HOURS FOR

REACTIONS (1)
  - Cholestasis [Recovered/Resolved]
